FAERS Safety Report 10311103 (Version 1)
Quarter: 2014Q3

REPORT INFORMATION
  Report Type: Spontaneous
  Country: US (occurrence: None)
  Receive Date: 20140716
  Receipt Date: 20140716
  Transmission Date: 20150326
  Serious: Yes (Life-Threatening, Hospitalization)
  Sender: FDA-Public Use
  Company Number: None

PATIENT
  Age: 72 Year
  Sex: Male

DRUGS (5)
  1. OXYBUTYNIN XR [Concomitant]
  2. LEVETIRACETAM ER [Concomitant]
  3. LISINOPRIL. [Concomitant]
     Active Substance: LISINOPRIL
  4. CYCLOSPORINE. [Concomitant]
     Active Substance: CYCLOSPORINE
  5. CLOPIDOGREL [Suspect]
     Active Substance: CLOPIDOGREL BISULFATE
     Indication: CATHETERISATION CARDIAC
     Dosage: 1 TABLET, PO, QD
     Route: 048
     Dates: start: 20110702

REACTIONS (5)
  - Complex partial seizures [None]
  - Thrombotic thrombocytopenic purpura [None]
  - Fatigue [None]
  - Disorientation [None]
  - Loss of consciousness [None]

NARRATIVE: CASE EVENT DATE: 20140706
